FAERS Safety Report 19827098 (Version 1)
Quarter: 2021Q3

REPORT INFORMATION
  Report Type: Spontaneous
  Country: US (occurrence: US)
  Receive Date: 20210914
  Receipt Date: 20210914
  Transmission Date: 20211014
  Serious: Yes (Death)
  Sender: FDA-Public Use
  Company Number: None

PATIENT
  Age: 53 Year
  Sex: Female

DRUGS (4)
  1. ATORVASTATIN [Concomitant]
     Active Substance: ATORVASTATIN
  2. AMLODIPINE [Concomitant]
     Active Substance: AMLODIPINE BESYLATE
  3. LEVOTHYROXINE. [Concomitant]
     Active Substance: LEVOTHYROXINE
  4. CLOZAPINE. [Suspect]
     Active Substance: CLOZAPINE
     Indication: SCHIZOPHRENIA
     Route: 048
     Dates: end: 20210902

REACTIONS (14)
  - Faecaloma [None]
  - Gastric dilatation [None]
  - Haematemesis [None]
  - Arteriosclerosis [None]
  - Abdominal tenderness [None]
  - Abdominal pain [None]
  - Pulmonary congestion [None]
  - Vomiting [None]
  - Nausea [None]
  - Constipation [None]
  - Unresponsive to stimuli [None]
  - Abdominal distension [None]
  - Pulse absent [None]
  - Intestinal dilatation [None]

NARRATIVE: CASE EVENT DATE: 20210902
